FAERS Safety Report 6437249-2 (Version None)
Quarter: 2009Q4

REPORT INFORMATION
  Report Type: 
  Country: None (occurrence: None)
  Receive Date: 20091112
  Receipt Date: 20091105
  Transmission Date: 20100525
  Serious: Yes (Hospitalization)
  Sender: FDA-Public Use
  Company Number: US-ROCHE-665302

PATIENT
  Sex: Female
  Weight: 40.8 kg

DRUGS (8)
  1. BONIVA [Suspect]
     Indication: OSTEOPOROSIS
     Dosage: FREQUENCY: ONCE
     Route: 042
     Dates: start: 20090914
  2. AVENOX [Suspect]
     Indication: MULTIPLE SCLEROSIS
     Route: 065
  3. AVENOX [Suspect]
     Route: 065
  4. MARINOL [Concomitant]
  5. PAXIL [Concomitant]
     Indication: DEPRESSION
     Dosage: OTHER INDICATION: ANXIETY
  6. DURAGESIC-100 [Concomitant]
     Dosage: FREQUENCY: Q48
     Route: 062
  7. DETROL [Concomitant]
  8. FIORICET [Concomitant]
     Indication: MIGRAINE
     Dosage: DOSE: PRN (AS NEEDED).
     Route: 048

REACTIONS (5)
  - BLOOD GLUCOSE DECREASED [None]
  - FALL [None]
  - FULL BLOOD COUNT DECREASED [None]
  - SPINAL FRACTURE [None]
  - WHITE BLOOD CELL COUNT DECREASED [None]
